FAERS Safety Report 4552739-5 (Version None)
Quarter: 2005Q1

REPORT INFORMATION
  Report Type: 
  Country: None (occurrence: None)
  Receive Date: 20050114
  Receipt Date: 20041208
  Transmission Date: 20050727
  Serious: Yes (Hospitalization)
  Sender: FDA-Public Use
  Company Number: PHNU2004DE04120

PATIENT
  Age: 48 Year
  Sex: Female

DRUGS (1)
  1. ESTRADOT [Suspect]
     Indication: HYSTERECTOMY
     Route: 062
     Dates: start: 20030101

REACTIONS (8)
  - ABDOMINAL DISCOMFORT [None]
  - ABDOMINAL PAIN [None]
  - APPENDICECTOMY [None]
  - APPENDICITIS [None]
  - BLADDER DISORDER [None]
  - CYSTOSCOPY [None]
  - ENDOMETRIOSIS [None]
  - MEDICATION ERROR [None]
